FAERS Safety Report 5977686-3 (Version None)
Quarter: 2008Q4

REPORT INFORMATION
  Report Type: 
  Country: None (occurrence: None)
  Receive Date: 20081126
  Receipt Date: 20081117
  Transmission Date: 20090506
  Serious: No
  Sender: FDA-Public Use
  Company Number: 20085530

PATIENT
  Age: 37 Year
  Sex: Male

DRUGS (1)
  1. LIORESAL [Suspect]
     Indication: MUSCLE SPASTICITY
     Dosage: 499.4 MCG, DAILY, INTRATHECAL
     Route: 037

REACTIONS (3)
  - AUTONOMIC DYSREFLEXIA [None]
  - MUSCLE SPASTICITY [None]
  - WITHDRAWAL SYNDROME [None]
